FAERS Safety Report 5739724-2 (Version None)
Quarter: 2008Q2

REPORT INFORMATION
  Report Type: 
  Country: None (occurrence: None)
  Receive Date: 20080512
  Receipt Date: 20080512
  Transmission Date: 20081010
  Serious: Yes (Hospitalization)
  Sender: FDA-Public Use
  Company Number: None

PATIENT
  Age: 54 Year
  Sex: Female

DRUGS (1)
  1. ASPIRIN [Suspect]
     Indication: HEADACHE
     Dosage: 2-3 TABLETS DAILY PO SEVERAL WEEKS
     Route: 048

REACTIONS (5)
  - ANAEMIA [None]
  - GASTRIC ULCER [None]
  - GASTRITIS [None]
  - HAEMATEMESIS [None]
  - MELAENA [None]
